FAERS Safety Report 24602257 (Version 1)
Quarter: 2024Q4

REPORT INFORMATION
  Report Type: Spontaneous
  Country: PT (occurrence: PT)
  Receive Date: 20241111
  Receipt Date: 20241111
  Transmission Date: 20250114
  Serious: Yes (Hospitalization, Disabling, Other)
  Sender: SANDOZ
  Company Number: PT-SA-2021SA204382

PATIENT
  Age: 79 Year
  Sex: Male

DRUGS (15)
  1. FUROSEMIDE [Suspect]
     Active Substance: FUROSEMIDE
     Indication: Product used for unknown indication
     Dosage: 20 MG, QD
     Route: 065
  2. PANTOPRAZOLE [Suspect]
     Active Substance: PANTOPRAZOLE
     Indication: Product used for unknown indication
     Dosage: 20 MG, QD
     Route: 065
  3. PERINDOPRIL [Suspect]
     Active Substance: PERINDOPRIL
     Indication: Product used for unknown indication
     Dosage: 4 MG, QD
     Route: 065
  4. PRADAXA [Suspect]
     Active Substance: DABIGATRAN ETEXILATE MESYLATE
     Indication: Middle cerebral artery stroke
     Dosage: 110 MG, Q12H
     Route: 065
  5. RISPERIDONE [Suspect]
     Active Substance: RISPERIDONE
     Indication: Psychotic symptom
     Dosage: 1 MG, QD (TWO WEEKS LATER REDUCED TO 1 MG PER DAY)
     Route: 065
  6. RISPERIDONE [Suspect]
     Active Substance: RISPERIDONE
     Indication: Psychotic disorder
     Dosage: 4 MG, QD (TITRATED UP TO 4MG/DAY)
     Route: 065
  7. RISPERIDONE [Suspect]
     Active Substance: RISPERIDONE
     Indication: Psychotic disorder due to a general medical condition
  8. ROSUVASTATIN [Suspect]
     Active Substance: ROSUVASTATIN
     Indication: Product used for unknown indication
     Dosage: 20 MG, QD
     Route: 065
  9. TRAZODONE [Suspect]
     Active Substance: TRAZODONE HYDROCHLORIDE
     Indication: Product used for unknown indication
     Dosage: 50 MG, QD
     Route: 065
  10. QUETIAPINE [Interacting]
     Active Substance: QUETIAPINE
     Indication: Insomnia
     Dosage: 100 MG, QD
     Route: 065
  11. QUETIAPINE [Interacting]
     Active Substance: QUETIAPINE
     Dosage: 200 MG, QD
     Route: 065
  12. QUETIAPINE [Interacting]
     Active Substance: QUETIAPINE
     Dosage: 50 MG, QD
     Route: 048
  13. VALPROIC ACID [Interacting]
     Active Substance: VALPROIC ACID
     Indication: Behaviour disorder
     Dosage: 500 MG, QD
     Route: 048
  14. VALPROIC ACID [Interacting]
     Active Substance: VALPROIC ACID
     Indication: Psychotic disorder due to a general medical condition
     Dosage: 800 MG, QD
     Route: 048
  15. VALPROIC ACID [Interacting]
     Active Substance: VALPROIC ACID
     Indication: Psychotic symptom

REACTIONS (15)
  - Ischaemia [Unknown]
  - Dysarthria [Recovering/Resolving]
  - Insomnia [Unknown]
  - Aggression [Recovering/Resolving]
  - Psychotic disorder due to a general medical condition [Recovering/Resolving]
  - Salivary hypersecretion [Recovering/Resolving]
  - Drug ineffective [Recovered/Resolved]
  - Psychomotor skills impaired [Recovered/Resolved]
  - Psychomotor retardation [Unknown]
  - Condition aggravated [Unknown]
  - Psychotic symptom [Unknown]
  - Thrombocytopenia [Recovered/Resolved]
  - Labelled drug-drug interaction medication error [Unknown]
  - Platelet count increased [Unknown]
  - Off label use [Unknown]
